FAERS Safety Report 7763468-9 (Version None)
Quarter: 2011Q3

REPORT INFORMATION
  Report Type: 
  Country: None (occurrence: None)
  Receive Date: 20110920
  Receipt Date: 20110915
  Transmission Date: 20111222
  Serious: Yes (Hospitalization, Other)
  Sender: FDA-Public Use
  Company Number: GB-PFIZER INC-GB-WYE-G06800110

PATIENT
  Age: 68 Year
  Sex: Female

DRUGS (9)
  1. IBUPROFEN [Interacting]
     Indication: POSTOPERATIVE ANALGESIA
     Dosage: 200 MG, 3 TIMES DAILY
     Route: 048
     Dates: start: 20101003, end: 20101003
  2. MIRTAZAPINE [Concomitant]
     Route: 065
  3. ATENOLOL [Concomitant]
     Route: 065
  4. RIVAROXABAN [Suspect]
     Indication: THROMBOSIS PROPHYLAXIS
     Dosage: 10 MG, 2 IN TOTAL
     Route: 048
     Dates: start: 20101002, end: 20101003
  5. LEVOTHYROXINE [Concomitant]
     Route: 065
  6. ACETAMINOPHEN AND CODEINE PHOSPHATE [Concomitant]
  7. RAMIPRIL [Concomitant]
     Route: 065
  8. ASPIRIN [Suspect]
     Indication: CARDIOVASCULAR DISORDER
     Dosage: 75 MG, 1X/DAY
     Route: 048
     Dates: end: 20101003
  9. ACETAMINOPHEN [Concomitant]

REACTIONS (3)
  - OESOPHAGITIS HAEMORRHAGIC [None]
  - DRUG INTERACTION [None]
  - HYPOTENSION [None]
